FAERS Safety Report 10211748 (Version 4)
Quarter: 2014Q3

REPORT INFORMATION
  Report Type: Spontaneous
  Country: IE (occurrence: None)
  Receive Date: 20140528
  Receipt Date: 20140715
  Transmission Date: 20150326
  Serious: Yes (Hospitalization, Other)
  Sender: FDA-Public Use
  Company Number: 2014IE004283

PATIENT
  Age: 67 Year
  Sex: Male

DRUGS (10)
  1. ELIGARD [Suspect]
     Active Substance: LEUPROLIDE ACETATE
     Indication: PROSTATE CANCER
     Dosage: 45 MG, ONCE IN 6 MONTHS, OTHER
     Route: 050
     Dates: start: 201208
  2. CAPRIN (ACETYLSALICYLIC ACID) [Concomitant]
  3. LEXAPRO [Suspect]
     Active Substance: ESCITALOPRAM OXALATE
     Indication: DEPRESSION
     Route: 048
     Dates: start: 201404
  4. ELANTAN (ISOSORBIDE MONONITRATE) [Concomitant]
  5. SOLPADOL (CODEINE PHOSPHATE, PARACETAMOL) [Concomitant]
  6. IBUPROFEN. [Concomitant]
     Active Substance: IBUPROFEN
  7. STILNOCT (ZOLPIDEM TARTRATE) [Concomitant]
     Active Substance: ZOLPIDEM TARTRATE
  8. TAMSULOSIN HYDROCHLORIDE (TAMSULOSIN HYDROCHLORIDE) [Concomitant]
     Active Substance: TAMSULOSIN HYDROCHLORIDE
  9. XENICAL (ORLISTAT) [Concomitant]
  10. BORONEX (BUSPIRONE HYDROCHLORIDE) [Concomitant]

REACTIONS (31)
  - Hyperhidrosis [None]
  - Hordeolum [None]
  - Skin disorder [None]
  - Weight increased [None]
  - Dry mouth [None]
  - Abscess [None]
  - Drug interaction [None]
  - Urinary tract infection [None]
  - Fatigue [None]
  - Hypotonia [None]
  - Stress [None]
  - Headache [None]
  - Contusion [None]
  - Rash [None]
  - Furuncle [None]
  - Alopecia [None]
  - Allergy to arthropod sting [None]
  - Breast mass [None]
  - Gynaecomastia [None]
  - Onychoclasis [None]
  - Pruritus [None]
  - Insomnia [None]
  - Gait disturbance [None]
  - Depression [None]
  - Anaphylactic reaction [None]
  - Chills [None]
  - Feeling drunk [None]
  - Sinus disorder [None]
  - Peripheral swelling [None]
  - Disturbance in attention [None]
  - Breast tenderness [None]

NARRATIVE: CASE EVENT DATE: 2012
